FAERS Safety Report 22147539 (Version 1)
Quarter: 2023Q1

REPORT INFORMATION
  Report Type: Spontaneous
  Country: US (occurrence: None)
  Receive Date: 20230328
  Receipt Date: 20230328
  Transmission Date: 20230418
  Serious: No
  Sender: FDA-Public Use
  Company Number: None

PATIENT
  Sex: Female

DRUGS (1)
  1. AMPHETAMINE SULFATE\DEXTROAMPHETAMINE [Suspect]
     Active Substance: AMPHETAMINE SULFATE\DEXTROAMPHETAMINE

REACTIONS (8)
  - Loss of personal independence in daily activities [None]
  - Impaired work ability [None]
  - Communication disorder [None]
  - Somnolence [None]
  - Somnolence [None]
  - Depressed mood [None]
  - Attention deficit hyperactivity disorder [None]
  - Condition aggravated [None]

NARRATIVE: CASE EVENT DATE: 20230225
